FAERS Safety Report 4629639-5 (Version None)
Quarter: 2005Q2

REPORT INFORMATION
  Report Type: 
  Country: None (occurrence: None)
  Receive Date: 20050406
  Receipt Date: 20050330
  Transmission Date: 20051028
  Serious: Yes (Life-Threatening)
  Sender: FDA-Public Use
  Company Number: 2005051367

PATIENT
  Age: 84 Year
  Sex: Male

DRUGS (3)
  1. ALDACTONE [Suspect]
     Indication: ILL-DEFINED DISORDER
     Dosage: 25 MG (QD) , ORAL
     Route: 048
  2. LISINOPRIL [Suspect]
     Indication: ILL-DEFINED DISORDER
     Dosage: 30 MG (20 MG), ORAL
     Route: 048
  3. POTASSIUM CHLORIDE [Suspect]
     Indication: ILL-DEFINED DISORDER
     Dosage: PARENTERAL
     Route: 051

REACTIONS (5)
  - BRADYCARDIA [None]
  - COMA [None]
  - DIALYSIS [None]
  - HYPERKALAEMIA [None]
  - OLIGURIA [None]
